FAERS Safety Report 15484647 (Version 1)
Quarter: 2018Q4

REPORT INFORMATION
  Report Type: Report from Study
  Country: US (occurrence: US)
  Receive Date: 20181010
  Receipt Date: 20181010
  Transmission Date: 20190205
  Serious: Yes (Hospitalization, Other)
  Sender: FDA-Public Use
  Company Number: US-SHIRE-US201838545

PATIENT
  Sex: Male

DRUGS (3)
  1. GATTEX [Suspect]
     Active Substance: TEDUGLUTIDE\WATER
     Indication: RETROPERITONEAL NEOPLASM METASTATIC
     Dosage: 0.343 ML, 1X/DAY:QD
     Route: 058
     Dates: start: 201407
  2. GATTEX [Suspect]
     Active Substance: TEDUGLUTIDE\WATER
     Indication: METASTASES TO PERITONEUM
  3. GATTEX [Suspect]
     Active Substance: TEDUGLUTIDE\WATER
     Indication: OFF LABEL USE

REACTIONS (2)
  - Haemorrhage [Unknown]
  - Off label use [Unknown]
